FAERS Safety Report 5891664-4 (Version None)
Quarter: 2008Q3

REPORT INFORMATION
  Report Type: 
  Country: None (occurrence: None)
  Receive Date: 20080922
  Receipt Date: 20080910
  Transmission Date: 20090109
  Serious: Yes (Other)
  Sender: FDA-Public Use
  Company Number: JP-PFIZER INC-2008050066

PATIENT
  Sex: Female

DRUGS (16)
  1. GABAPEN [Suspect]
     Indication: PAIN
     Route: 048
     Dates: start: 20080523
  2. GABAPEN [Suspect]
     Indication: HYPOAESTHESIA
  3. ETHAMBUTOL HCL [Suspect]
     Indication: TUBERCULOSIS
     Dosage: TEXT:2 TABLETS; 6 TABLETS
     Route: 048
     Dates: start: 20071101
  4. ETHAMBUTOL HCL [Suspect]
     Indication: PULMONARY TUBERCULOSIS
  5. ISCOTIN [Suspect]
     Indication: PULMONARY TUBERCULOSIS
     Dosage: TEXT:1 TABLETS; 3 TABLETS
     Route: 048
     Dates: start: 20071101, end: 20080101
  6. RIFADIN [Concomitant]
     Route: 048
     Dates: start: 20071101
  7. THEOLONG [Concomitant]
     Route: 048
  8. FLUITRAN [Concomitant]
     Route: 048
  9. DEPAS [Concomitant]
     Route: 048
  10. LIPITOR [Concomitant]
     Route: 048
  11. PANALDINE [Concomitant]
     Route: 048
  12. BLOPRESS [Concomitant]
     Route: 048
  13. PYDOXAL [Concomitant]
     Route: 048
  14. FLUTIDE DISKUS [Concomitant]
     Route: 055
  15. ALINAMIN F [Concomitant]
     Route: 048
  16. MUCODYNE [Concomitant]
     Route: 048

REACTIONS (1)
  - OPTIC NEURITIS [None]
